FAERS Safety Report 10172946 (Version 2)
Quarter: 2014Q2

REPORT INFORMATION
  Report Type: Spontaneous
  Country: US (occurrence: US)
  Receive Date: 20140515
  Receipt Date: 20140609
  Transmission Date: 20141212
  Serious: Yes (Life-Threatening)
  Sender: FDA-Public Use
  Company Number: US-JNJFOC-20140504466

PATIENT
  Age: 52 Year
  Sex: Female

DRUGS (7)
  1. STELARA [Suspect]
     Indication: PSORIASIS
     Route: 058
     Dates: start: 20100524, end: 20140429
  2. NECON [Concomitant]
     Route: 065
  3. AMLODIPINE [Concomitant]
     Route: 065
  4. NABUMETONE [Concomitant]
     Route: 065
  5. CLARITIN [Concomitant]
     Route: 065
  6. FLUTICASONE [Concomitant]
     Route: 045
  7. DULCOLAX [Concomitant]
     Route: 065

REACTIONS (1)
  - Breast cancer [Not Recovered/Not Resolved]
